FAERS Safety Report 7186337-4 (Version None)
Quarter: 2010Q4

REPORT INFORMATION
  Report Type: 
  Country: None (occurrence: None)
  Receive Date: 20101222
  Receipt Date: 20100618
  Transmission Date: 20110411
  Serious: Yes (Other)
  Sender: FDA-Public Use
  Company Number: US-AMGEN-QUU419392

PATIENT

DRUGS (2)
  1. ENBREL [Suspect]
     Indication: RHEUMATOID ARTHRITIS
     Dosage: 50 MG, QWK
     Route: 058
     Dates: start: 20081108
  2. METHOTREXATE [Concomitant]
     Dosage: UNK UNK, UNK

REACTIONS (8)
  - ARTHRALGIA [None]
  - COUGH [None]
  - MENISCUS LESION [None]
  - MULTIPLE ALLERGIES [None]
  - OROPHARYNGEAL PAIN [None]
  - PNEUMONIA [None]
  - RASH [None]
  - RESPIRATORY TRACT CONGESTION [None]
